FAERS Safety Report 6773061-2 (Version None)
Quarter: 2010Q2

REPORT INFORMATION
  Report Type: 
  Country: None (occurrence: None)
  Receive Date: 20100616
  Receipt Date: 20100604
  Transmission Date: 20101027
  Serious: Yes (Life-Threatening, Hospitalization)
  Sender: FDA-Public Use
  Company Number: DK-PFIZER INC-2010062560

PATIENT
  Age: 72 Year
  Sex: Male
  Weight: 106 kg

DRUGS (8)
  1. BLINDED *NO SUBJECT DRUG [Suspect]
     Indication: PROSTATE CANCER
     Dosage: 37.5 MG, 1X/DAY
     Route: 048
     Dates: start: 20091221, end: 20100509
  2. BLINDED *PLACEBO [Suspect]
     Indication: PROSTATE CANCER
     Dosage: 37.5 MG, 1X/DAY
     Route: 048
     Dates: start: 20091221, end: 20100509
  3. SUNITINIB MALATE [Suspect]
     Indication: PROSTATE CANCER
     Dosage: 37.5 MG, 1X/DAY
     Route: 048
     Dates: start: 20091221, end: 20100509
  4. PREDNISOLONE [Suspect]
     Indication: PROSTATE CANCER
     Dosage: 10 MG, 2X/DAY
     Dates: start: 20091221, end: 20100503
  5. TERBINAFINE [Concomitant]
     Indication: FUNGAL INFECTION
     Dosage: UNK
     Dates: start: 20100101, end: 20100515
  6. RAMIPRIL [Concomitant]
     Indication: HYPERTENSION
     Dosage: UNK
     Dates: start: 20070101, end: 20100515
  7. TRADOLAN [Concomitant]
     Indication: PAIN
     Dosage: UNK
     Dates: start: 20100510
  8. PARACETAMOL [Concomitant]
     Dosage: UNK

REACTIONS (1)
  - THROMBOTIC THROMBOCYTOPENIC PURPURA [None]
